FAERS Safety Report 22659380 (Version 5)
Quarter: 2024Q2

REPORT INFORMATION
  Report Type: Spontaneous
  Country: DE (occurrence: DE)
  Receive Date: 20230630
  Receipt Date: 20240529
  Transmission Date: 20240715
  Serious: No
  Sender: FDA-Public Use
  Company Number: DE-PFIZER INC-202300233438

PATIENT
  Age: 51 Year
  Sex: Male
  Weight: 105 kg

DRUGS (1)
  1. CAVERJECT [Suspect]
     Active Substance: ALPROSTADIL
     Indication: Erectile dysfunction
     Dosage: 1 X IF REQUIRED MAX 3 X WEEK

REACTIONS (3)
  - Product packaging issue [Unknown]
  - Liquid product physical issue [Unknown]
  - Drug ineffective [Unknown]
